FAERS Safety Report 4556470-1 (Version None)
Quarter: 2005Q1

REPORT INFORMATION
  Report Type: 
  Country: None (occurrence: None)
  Receive Date: 20050114
  Receipt Date: 20050103
  Transmission Date: 20050727
  Serious: Yes (Hospitalization)
  Sender: FDA-Public Use
  Company Number: 200855

PATIENT
  Age: 34 Year
  Sex: Male
  Weight: 77.1115 kg

DRUGS (4)
  1. AVONEX [Suspect]
     Indication: MULTIPLE SCLEROSIS
     Dosage: 30 UG; QW; IM
     Route: 030
     Dates: start: 20020601, end: 20031201
  2. AVONEX [Suspect]
     Indication: MULTIPLE SCLEROSIS
     Dosage: 30 UG; QW; IM
     Route: 030
     Dates: start: 20031201, end: 20040320
  3. PAXIL [Concomitant]
  4. NEURONTIN [Concomitant]

REACTIONS (5)
  - INJURY [None]
  - PNEUMONIA [None]
  - PNEUMONITIS [None]
  - POST PROCEDURAL COMPLICATION [None]
  - ROTATOR CUFF SYNDROME [None]
